FAERS Safety Report 9131243 (Version 1)
Quarter: 2013Q1

REPORT INFORMATION
  Report Type: Spontaneous
  Country: BR (occurrence: BR)
  Receive Date: 20130301
  Receipt Date: 20130301
  Transmission Date: 20140127
  Serious: Yes (Hospitalization)
  Sender: FDA-Public Use
  Company Number: BR-ELI_LILLY_AND_COMPANY-BR201302006025

PATIENT
  Age: 14 Year
  Sex: Female
  Weight: 55 kg

DRUGS (1)
  1. CYMBALTA [Suspect]
     Indication: DEPRESSED MOOD
     Dosage: 60 MG, QD
     Route: 048
     Dates: start: 20130216

REACTIONS (6)
  - Eye disorder [Unknown]
  - Dizziness [Not Recovered/Not Resolved]
  - Tremor [Unknown]
  - Mydriasis [Unknown]
  - Feeling abnormal [Unknown]
  - Off label use [Unknown]
